FAERS Safety Report 6700503-0 (Version None)
Quarter: 2010Q2

REPORT INFORMATION
  Report Type: 
  Country: None (occurrence: None)
  Receive Date: 20100428
  Receipt Date: 20100421
  Transmission Date: 20101027
  Serious: Yes (Death, Hospitalization, Other)
  Sender: FDA-Public Use
  Company Number: A0809449A

PATIENT
  Age: 36 Year
  Sex: Male

DRUGS (3)
  1. PROMACTA [Suspect]
     Indication: HEPATITIS C
     Dosage: 50MG PER DAY
     Route: 048
     Dates: start: 20090615, end: 20090820
  2. PEG-INTRON [Suspect]
  3. RIBAVIRIN [Suspect]

REACTIONS (5)
  - BLOOD BILIRUBIN INCREASED [None]
  - HEPATIC CIRRHOSIS [None]
  - HEPATIC FAILURE [None]
  - JAUNDICE [None]
  - PERITONITIS [None]
